FAERS Safety Report 12995850 (Version 1)
Quarter: 2016Q4

REPORT INFORMATION
  Report Type: Spontaneous
  Country: US (occurrence: US)
  Receive Date: 20161202
  Receipt Date: 20161202
  Transmission Date: 20170207
  Serious: Yes (Hospitalization)
  Sender: FDA-Public Use
  Company Number: US-SAGENTPRD-2016-US-000078

PATIENT
  Age: 68 Year
  Sex: Male

DRUGS (3)
  1. FLUOROURACIL. [Concomitant]
     Active Substance: FLUOROURACIL
  2. LEUCOVORIN CALCIUM FOR INJECTION [Suspect]
     Active Substance: LEUCOVORIN CALCIUM
     Dosage: UNKNOWN
  3. CISPLATIN. [Concomitant]
     Active Substance: CISPLATIN

REACTIONS (2)
  - Veillonella infection [Recovered/Resolved]
  - Extradural abscess [Recovered/Resolved]
